FAERS Safety Report 7290039-3 (Version None)
Quarter: 2011Q1

REPORT INFORMATION
  Report Type: 
  Country: None (occurrence: None)
  Receive Date: 20110209
  Receipt Date: 20110209
  Transmission Date: 20110831
  Serious: Yes (Other)
  Sender: FDA-Public Use
  Company Number: None

PATIENT
  Age: 65 Year
  Sex: Female

DRUGS (1)
  1. NITROFURANTOIN [Suspect]
     Dates: start: 20061210, end: 20091001

REACTIONS (3)
  - BREAST CANCER STAGE I [None]
  - HEPATIC STEATOSIS [None]
  - CHRONIC HEPATITIS [None]
